FAERS Safety Report 14314846 (Version 1)
Quarter: 2017Q4

REPORT INFORMATION
  Report Type: Report from Study
  Country: US (occurrence: US)
  Receive Date: 20171221
  Receipt Date: 20171221
  Transmission Date: 20180321
  Serious: Yes (Hospitalization)
  Sender: FDA-Public Use
  Company Number: US-TEVA-2017-US-835218

PATIENT
  Age: 50 Year
  Sex: Male

DRUGS (2)
  1. PEMETREXED. [Suspect]
     Active Substance: PEMETREXED
     Indication: LUNG ADENOCARCINOMA STAGE IV
     Dosage: 500 MG/M2; EVERY THREE WEEKS
     Route: 065
     Dates: start: 201511, end: 201601
  2. CARBOPLATIN. [Suspect]
     Active Substance: CARBOPLATIN
     Indication: LUNG ADENOCARCINOMA STAGE IV
     Dosage: EVERY THREE WEEKS
     Route: 065
     Dates: start: 201511, end: 201601

REACTIONS (3)
  - Cytopenia [Unknown]
  - Vomiting [Unknown]
  - Nausea [Unknown]
